FAERS Safety Report 4355961-6 (Version None)
Quarter: 2004Q2

REPORT INFORMATION
  Report Type: 
  Country: None (occurrence: None)
  Receive Date: 20040505
  Receipt Date: 20040427
  Transmission Date: 20050107
  Serious: Yes (Other)
  Sender: FDA-Public Use
  Company Number: 200412102BCC

PATIENT
  Sex: Male

DRUGS (1)
  1. ALEVE [Suspect]
     Indication: ARTHRITIS
     Dosage: 220 MG, QD, ORAL
     Route: 048
     Dates: end: 20040101

REACTIONS (1)
  - MYOCARDIAL INFARCTION [None]
